FAERS Safety Report 21109888 (Version 3)
Quarter: 2023Q1

REPORT INFORMATION
  Report Type: Spontaneous
  Country: US (occurrence: US)
  Receive Date: 20220721
  Receipt Date: 20230127
  Transmission Date: 20230418
  Serious: No
  Sender: FDA-Public Use
  Company Number: US-ENDO PHARMACEUTICALS INC-2022-003431

PATIENT
  Sex: Female

DRUGS (3)
  1. QWO [Suspect]
     Active Substance: COLLAGENASE CLOSTRIDIUM HISTOLYTICUM-AAES
     Indication: Cellulite
     Dosage: UNK UNKNOWN, UNKNOWN (TREATMENT ONE) 12 INJECTIONS
     Route: 065
     Dates: start: 20220216
  2. QWO [Suspect]
     Active Substance: COLLAGENASE CLOSTRIDIUM HISTOLYTICUM-AAES
     Dosage: UNK UNKNOWN, UNKNOWN (TREATMENT TWO), 24 INJECTIONS
     Route: 065
     Dates: start: 20220316
  3. QWO [Suspect]
     Active Substance: COLLAGENASE CLOSTRIDIUM HISTOLYTICUM-AAES
     Dosage: UNK UNKNOWN, UNKNOWN (TREATMENT THREE), 24 INJECTIONS
     Route: 065
     Dates: start: 20220413

REACTIONS (7)
  - Skin indentation [Unknown]
  - Lipodystrophy acquired [Not Recovered/Not Resolved]
  - Cutaneous contour deformity [Not Recovered/Not Resolved]
  - Contusion [Unknown]
  - Skin discolouration [Not Recovered/Not Resolved]
  - Skin hyperpigmentation [Not Recovered/Not Resolved]
  - Inappropriate schedule of product administration [Unknown]

NARRATIVE: CASE EVENT DATE: 20220101
